FAERS Safety Report 15912753 (Version 1)
Quarter: 2019Q1

REPORT INFORMATION
  Report Type: Spontaneous
  Country: FR (occurrence: FR)
  Receive Date: 20190204
  Receipt Date: 20190204
  Transmission Date: 20190417
  Serious: Yes (Hospitalization)
  Sender: FDA-Public Use
  Company Number: FR-PFIZER INC-HQWYE864210OCT06

PATIENT
  Age: 40 Year
  Sex: Female

DRUGS (3)
  1. AERIUS (DESLORATADINE) [Suspect]
     Active Substance: DESLORATADINE
     Dosage: UNK
     Route: 048
     Dates: end: 200604
  2. ADVIL [Suspect]
     Active Substance: IBUPROFEN
     Dosage: AS NEEDED
     Route: 048
     Dates: end: 200604
  3. SUPRADYN [FERROUS CARBONATE;MAGNESIUM PHOSPHATE MONOBASIC;MANGANESE SU [Suspect]
     Active Substance: MINERALS\VITAMINS
     Dosage: 1 DF, 1X/DAY
     Route: 048
     Dates: start: 20060401, end: 20060410

REACTIONS (9)
  - Hepatitis [Recovering/Resolving]
  - Concomitant disease progression [Unknown]
  - Disease recurrence [None]
  - Cholestasis [Unknown]
  - Hepatocellular injury [None]
  - Hepatic necrosis [None]
  - Ocular icterus [Unknown]
  - Hepatic cirrhosis [Unknown]
  - Hepatic fibrosis [None]

NARRATIVE: CASE EVENT DATE: 2006
